FAERS Safety Report 7488780-2 (Version None)
Quarter: 2011Q2

REPORT INFORMATION
  Report Type: 
  Country: None (occurrence: None)
  Receive Date: 20110518
  Receipt Date: 20110509
  Transmission Date: 20111010
  Serious: Yes (Other)
  Sender: FDA-Public Use
  Company Number: CO-PFIZER INC-2011099737

PATIENT
  Age: 48 Year
  Sex: Female

DRUGS (1)
  1. PRISTIQ [Suspect]
     Indication: DEPRESSION
     Dosage: 50 MG PER DAY
     Route: 048

REACTIONS (6)
  - MICTURITION DISORDER [None]
  - WEIGHT DECREASED [None]
  - CYSTITIS [None]
  - INSOMNIA [None]
  - AKATHISIA [None]
  - ANXIETY [None]
